FAERS Safety Report 12550151 (Version 5)
Quarter: 2016Q4

REPORT INFORMATION
  Report Type: Report from Study
  Country: US (occurrence: US)
  Receive Date: 20160712
  Receipt Date: 20161028
  Transmission Date: 20170207
  Serious: Yes (Other)
  Sender: FDA-Public Use
  Company Number: US-TEVA-675865USA

PATIENT
  Age: 57 Year
  Sex: Male

DRUGS (4)
  1. CLOZAPINE. [Suspect]
     Active Substance: CLOZAPINE
     Indication: SCHIZOPHRENIA
     Dosage: 300 MILLIGRAM DAILY;
     Route: 048
     Dates: start: 201601
  2. LORAZEPAM. [Concomitant]
     Active Substance: LORAZEPAM
  3. COGENTIN [Concomitant]
     Active Substance: BENZTROPINE MESYLATE
  4. PAXIL [Concomitant]
     Active Substance: PAROXETINE HYDROCHLORIDE

REACTIONS (5)
  - Psychotic disorder [Unknown]
  - Agranulocytosis [Recovered/Resolved]
  - Granulocytopenia [Recovered/Resolved]
  - Granulocytopenia [Recovered/Resolved]
  - Drug ineffective [Unknown]

NARRATIVE: CASE EVENT DATE: 20160629
